FAERS Safety Report 4835661-6 (Version None)
Quarter: 2005Q4

REPORT INFORMATION
  Report Type: 
  Country: None (occurrence: None)
  Receive Date: 20051123
  Receipt Date: 20050830
  Transmission Date: 20060501
  Serious: Yes (Other)
  Sender: FDA-Public Use
  Company Number: 2005UW12993

PATIENT
  Age: 36 Year
  Sex: Female
  Weight: 80 kg

DRUGS (2)
  1. PRILOSEC OTC [Suspect]
     Indication: GASTROOESOPHAGEAL REFLUX DISEASE
     Route: 048
     Dates: start: 20050621, end: 20050621
  2. PRILOSEC OTC [Suspect]
     Route: 048
     Dates: start: 20050516, end: 20050530

REACTIONS (6)
  - ABDOMINAL PAIN UPPER [None]
  - CONVULSION [None]
  - DYSPHEMIA [None]
  - FORMICATION [None]
  - HYPERSENSITIVITY [None]
  - STOMACH DISCOMFORT [None]
